FAERS Safety Report 4892211-6 (Version None)
Quarter: 2006Q1

REPORT INFORMATION
  Report Type: 
  Country: None (occurrence: None)
  Receive Date: 20060125
  Receipt Date: 20060125
  Transmission Date: 20060701
  Serious: No
  Sender: FDA-Public Use
  Company Number: None

PATIENT
  Sex: Female

DRUGS (11)
  1. HEPARIN [Suspect]
     Indication: MITRAL VALVE REPLACEMENT
     Dosage: 600U/HR ,IV  :  300U/HR, IV : 350U/HR, IV
     Route: 042
     Dates: start: 20050819, end: 20050824
  2. NYSTATIN [Concomitant]
  3. ACETYLPYRAZINE [Concomitant]
  4. METOPROLOL [Concomitant]
  5. AMIODARONE HCL [Concomitant]
  6. MAGNESIUM SULFATE [Concomitant]
  7. LEVOTHYROXINE SODIUM [Concomitant]
  8. ASPIRIN [Concomitant]
  9. FLAGYL [Concomitant]
  10. LEVOFLOXACIN [Concomitant]
  11. LANSOPRAZOLE [Concomitant]

REACTIONS (2)
  - HEPARIN-INDUCED THROMBOCYTOPENIA [None]
  - SKIN DISCOLOURATION [None]
